FAERS Safety Report 22038719 (Version 1)
Quarter: 2023Q1

REPORT INFORMATION
  Report Type: Spontaneous
  Country: US (occurrence: US)
  Receive Date: 20230227
  Receipt Date: 20230227
  Transmission Date: 20230418
  Serious: No
  Sender: FDA-Public Use
  Company Number: US-BRISTOL-MYERS SQUIBB COMPANY-2023-028252

PATIENT
  Age: 82 Year
  Sex: Female

DRUGS (1)
  1. REVLIMID [Suspect]
     Active Substance: LENALIDOMIDE
     Indication: Acute myeloid leukaemia
     Dosage: 1 CAP 2 TIMES PER WEEK ON MONDAY AND THURSDAY
     Route: 048
     Dates: start: 20220616

REACTIONS (2)
  - Full blood count abnormal [Unknown]
  - Off label use [Unknown]
